FAERS Safety Report 16116517 (Version 2)
Quarter: 2019Q2

REPORT INFORMATION
  Report Type: Spontaneous
  Country: PT (occurrence: PT)
  Receive Date: 20190326
  Receipt Date: 20190528
  Transmission Date: 20190711
  Serious: Yes (Hospitalization, Other)
  Sender: FDA-Public Use
  Company Number: PT-AUROBINDO-AUR-APL-2019-014921

PATIENT

DRUGS (20)
  1. OLANZAPINE. [Suspect]
     Active Substance: OLANZAPINE
     Indication: ANXIETY
     Dosage: 25 MILLIGRAM, DAILY, DAYS ON 5-18
  2. OLANZAPINE. [Suspect]
     Active Substance: OLANZAPINE
     Indication: HALLUCINATION, AUDITORY
  3. LORAZEPAM. [Suspect]
     Active Substance: LORAZEPAM
     Indication: ANXIETY
     Dosage: 15 MILLIGRAM, DAILY, AT BED TIME
     Route: 065
  4. CYAMEMAZINE [Suspect]
     Active Substance: CYAMEMAZINE
     Indication: ANXIETY
     Dosage: 100 MILLIGRAM, DAILY, ON 7-18 DAYS
     Route: 065
  5. OLANZAPINE. [Suspect]
     Active Substance: OLANZAPINE
     Indication: SOLILOQUY
  6. LORAZEPAM. [Suspect]
     Active Substance: LORAZEPAM
     Indication: HALLUCINATION, AUDITORY
  7. FLURAZEPAM [Suspect]
     Active Substance: FLURAZEPAM\FLURAZEPAM HYDROCHLORIDE
     Indication: PRODUCT USED FOR UNKNOWN INDICATION
     Dosage: 15 MILLIGRAM AT BEDTIME
     Route: 065
  8. OLANZAPINE. [Suspect]
     Active Substance: OLANZAPINE
     Indication: INSOMNIA
  9. OLANZAPINE. [Suspect]
     Active Substance: OLANZAPINE
     Indication: PERSECUTORY DELUSION
  10. LORAZEPAM. [Suspect]
     Active Substance: LORAZEPAM
     Indication: HALLUCINATION, AUDITORY
     Dosage: 5 MILLIGRAM, DAILY
     Route: 065
  11. LORAZEPAM. [Suspect]
     Active Substance: LORAZEPAM
     Indication: AGGRESSION
  12. CYAMEMAZINE [Suspect]
     Active Substance: CYAMEMAZINE
     Indication: INSOMNIA
  13. CYAMEMAZINE [Suspect]
     Active Substance: CYAMEMAZINE
     Indication: AGGRESSION
  14. CYAMEMAZINE [Suspect]
     Active Substance: CYAMEMAZINE
     Indication: SOLILOQUY
  15. OLANZAPINE. [Suspect]
     Active Substance: OLANZAPINE
     Indication: AGGRESSION
  16. LORAZEPAM. [Suspect]
     Active Substance: LORAZEPAM
     Indication: SOLILOQUY
  17. CYAMEMAZINE [Suspect]
     Active Substance: CYAMEMAZINE
     Indication: HALLUCINATION, AUDITORY
  18. OLANZAPINE. [Suspect]
     Active Substance: OLANZAPINE
     Indication: HALLUCINATION, AUDITORY
     Dosage: 20 MILLIGRAM, DAILY ON 1-4 DAYS
  19. LORAZEPAM. [Suspect]
     Active Substance: LORAZEPAM
     Indication: INSOMNIA
     Dosage: UNK, ON DAYS 1-10 WITH MAXIMUM DOSE OF 5 MG/DAY
     Route: 065
  20. CYAMEMAZINE [Suspect]
     Active Substance: CYAMEMAZINE
     Indication: HALLUCINATION, AUDITORY

REACTIONS (3)
  - Pyrexia [Recovered/Resolved]
  - Drug ineffective [Unknown]
  - Neutrophilia [Unknown]
